FAERS Safety Report 10028604 (Version 2)
Quarter: 2014Q1

REPORT INFORMATION
  Report Type: Spontaneous
  Country: BR (occurrence: BR)
  Receive Date: 20140321
  Receipt Date: 20140325
  Transmission Date: 20141002
  Serious: Yes (Other)
  Sender: FDA-Public Use
  Company Number: BR-GLAXOSMITHKLINE-A1065451A

PATIENT
  Sex: Male
  Weight: 28 kg

DRUGS (2)
  1. FLIXOTIDE INHALER [Suspect]
     Indication: ASTHMA
     Dosage: 250MCG TWICE PER DAY
     Dates: start: 2012
  2. AEROLIN [Suspect]
     Indication: ASTHMATIC CRISIS
     Dosage: 2U FOUR TIMES PER DAY
     Dates: start: 2012

REACTIONS (3)
  - Asthmatic crisis [Recovering/Resolving]
  - Drug ineffective [Not Recovered/Not Resolved]
  - Underdose [Unknown]
